FAERS Safety Report 18498814 (Version 2)
Quarter: 2020Q4

REPORT INFORMATION
  Report Type: Spontaneous
  Country: CA (occurrence: CA)
  Receive Date: 20201112
  Receipt Date: 20201221
  Transmission Date: 20210114
  Serious: Yes (Life-Threatening, Hospitalization)
  Sender: FDA-Public Use
  Company Number: CA-TEVA-2020-CA-1846404

PATIENT
  Sex: Female

DRUGS (2)
  1. PANTOPRAZOLE [Suspect]
     Active Substance: PANTOPRAZOLE
     Indication: GASTROOESOPHAGEAL REFLUX DISEASE
     Dosage: FIRST TWO DOSES AND ROUTES NOT STATED
     Route: 065
  2. PANTOPRAZOLE [Suspect]
     Active Substance: PANTOPRAZOLE
     Indication: DRUG PROVOCATION TEST
     Dosage: 5, 10, AND 20 MG WITH A 30-MINUTE INTERVAL BETWEEN EACH DOSE (ORAL DRUG CHALLENGE TEST)
     Route: 048

REACTIONS (4)
  - Hypovolaemia [Unknown]
  - Enterocolitis [Unknown]
  - Drug hypersensitivity [Unknown]
  - Metabolic acidosis [Unknown]
